FAERS Safety Report 16927769 (Version 8)
Quarter: 2020Q1

REPORT INFORMATION
  Report Type: Spontaneous
  Country: PL (occurrence: PL)
  Receive Date: 20191016
  Receipt Date: 20200317
  Transmission Date: 20200409
  Serious: Yes (Life-Threatening, Hospitalization, Other)
  Sender: FDA-Public Use
  Company Number: PL-CELLTRION INC.-2019PL025567

PATIENT

DRUGS (64)
  1. RITUXIMAB (UNKNOWN) [Suspect]
     Active Substance: RITUXIMAB
     Indication: CHRONIC LYMPHOCYTIC LEUKAEMIA
     Dosage: UNK
     Route: 065
  2. CYCLOPHOSPHAMIDE. [Suspect]
     Active Substance: CYCLOPHOSPHAMIDE
     Indication: CHRONIC LYMPHOCYTIC LEUKAEMIA
     Dosage: UNK
     Route: 065
  3. CYCLOPHOSPHAMIDE. [Suspect]
     Active Substance: CYCLOPHOSPHAMIDE
     Dosage: 1300 MG, QD (DAY 1)
     Route: 065
  4. ENDOXAN [CYCLOPHOSPHAMIDE MONOHYDRATE] [Suspect]
     Active Substance: CYCLOPHOSPHAMIDE
     Indication: CHRONIC LYMPHOCYTIC LEUKAEMIA
     Dosage: DAYS 1-3 (CYCLE 1) R-FC REGIMEN
     Route: 065
  5. CIPROFLOXACIN. [Suspect]
     Active Substance: CIPROFLOXACIN
     Indication: PRODUCT USED FOR UNKNOWN INDICATION
     Dosage: 1000 MG, 1X PER DAY
     Route: 065
  6. RITUXIMAB (UNKNOWN) [Suspect]
     Active Substance: RITUXIMAB
     Dosage: 640 MG, QD (DAY 1)
     Route: 065
  7. RITUXIMAB (UNKNOWN) [Suspect]
     Active Substance: RITUXIMAB
     Dosage: 650 MG/DAY DAY 1 (SECOND LINE TREATMENT)
     Route: 065
  8. CYCLOPHOSPHAMIDE. [Suspect]
     Active Substance: CYCLOPHOSPHAMIDE
     Dosage: FIRST LINE OF THERAPY R-CD; 4 THE SAME 1 DAY THERAPY CYCLES
  9. CYCLOPHOSPHAMIDE. [Suspect]
     Active Substance: CYCLOPHOSPHAMIDE
     Dosage: SECOND LINE OF THERAPY R-CD; 6 THE SAME 1-DAY THERAPY CYCLES
  10. SIMVASTATIN. [Suspect]
     Active Substance: SIMVASTATIN
     Indication: HYPERCHOLESTEROLAEMIA
     Dosage: 20 MG, 1X PER DAY
     Route: 048
  11. RITUXIMAB (UNKNOWN) [Suspect]
     Active Substance: RITUXIMAB
     Indication: DISEASE PROGRESSION
     Dosage: 650 MG, QD (DAY 1)
     Route: 065
  12. RITUXIMAB (UNKNOWN) [Suspect]
     Active Substance: RITUXIMAB
     Dosage: R-CD REGIMEN (DAY-1) 4 IDENTICAL CYCLES (1ST LINE TREATMENT)
     Route: 065
  13. FLUDARABINE PHOSPHATE. [Suspect]
     Active Substance: FLUDARABINE PHOSPHATE
     Indication: CHRONIC LYMPHOCYTIC LEUKAEMIA
     Dosage: UNK
  14. FLUDARABINE PHOSPHATE. [Suspect]
     Active Substance: FLUDARABINE PHOSPHATE
     Indication: PRODUCT USED FOR UNKNOWN INDICATION
     Dosage: 40 MG, QD (1-3 DAY)
     Route: 065
  15. FLUDARABINE PHOSPHATE. [Suspect]
     Active Substance: FLUDARABINE PHOSPHATE
     Dosage: FIRST THERAPY LINE (R-FC); 1-3 DAYS IN THE FIRST CYCLE
  16. FLUDARABINE PHOSPHATE. [Suspect]
     Active Substance: FLUDARABINE PHOSPHATE
     Dosage: FIRST THERAPY LINE (R-FC); 1-3 DAYS IN THE SECOND CYCLE
  17. FLUDARABINE PHOSPHATE. [Suspect]
     Active Substance: FLUDARABINE PHOSPHATE
     Dosage: R-FC REGIMEN (DAYS 1-3) CYCLE 2
     Route: 065
  18. DEXAMETHASONE. [Suspect]
     Active Substance: DEXAMETHASONE
     Indication: PRODUCT USED FOR UNKNOWN INDICATION
     Dosage: 40 MG, QD DAY 1 (FIRST LINE TREATMENT)
     Route: 065
  19. DEXAMETHASONE. [Suspect]
     Active Substance: DEXAMETHASONE
     Dosage: R-CD REGIMEN (4IDENTICAL CYCLES) DAY 1 FIRST LINE TREATMENT
     Route: 065
  20. SIMVASTATIN. [Suspect]
     Active Substance: SIMVASTATIN
     Indication: PRODUCT USED FOR UNKNOWN INDICATION
     Dosage: 20 MG, QD
     Route: 065
  21. METFORMIN [Suspect]
     Active Substance: METFORMIN HYDROCHLORIDE
     Indication: PRODUCT USED FOR UNKNOWN INDICATION
  22. METHYLPREDNISOLONE. [Suspect]
     Active Substance: METHYLPREDNISOLONE
     Indication: CHRONIC LYMPHOCYTIC LEUKAEMIA
     Dosage: UNK
     Route: 065
  23. AMOXICILLIN CLAVULANIC ACID [Suspect]
     Active Substance: AMOXICILLIN\CLAVULANIC ACID
     Indication: PRODUCT USED FOR UNKNOWN INDICATION
     Dosage: 2000 MG, 1X PER DAY
     Route: 065
  24. RITUXIMAB (UNKNOWN) [Suspect]
     Active Substance: RITUXIMAB
     Indication: PRODUCT USED FOR UNKNOWN INDICATION
     Dosage: 850 MG, QD (DAY 1)
     Route: 065
  25. RITUXIMAB (UNKNOWN) [Suspect]
     Active Substance: RITUXIMAB
     Dosage: 600 MG, QD (DAY 1)
     Route: 065
  26. RITUXIMAB (UNKNOWN) [Suspect]
     Active Substance: RITUXIMAB
     Dosage: FIRST THERAPY LINE (R-FC); 1ST DAY IN THE FIRST CYCLE
  27. FLUDARABINE PHOSPHATE. [Suspect]
     Active Substance: FLUDARABINE PHOSPHATE
     Dosage: 42.5 MG, QD (1-3 DAY)
     Route: 065
  28. CYCLOPHOSPHAMIDE. [Suspect]
     Active Substance: CYCLOPHOSPHAMIDE
     Dosage: FIRST THERAPY LINE (R-FC); 1-3 DAYS IN THE THIRD CYCLE
  29. ENDOXAN [CYCLOPHOSPHAMIDE MONOHYDRATE] [Suspect]
     Active Substance: CYCLOPHOSPHAMIDE
     Dosage: DAYS 1-3 (CYCLE 3) R-FC REGIMEN
     Route: 065
  30. METHYLPREDNISOLONE. [Suspect]
     Active Substance: METHYLPREDNISOLONE
     Indication: PRODUCT USED FOR UNKNOWN INDICATION
  31. RITUXIMAB (UNKNOWN) [Suspect]
     Active Substance: RITUXIMAB
     Dosage: FIRST THERAPY LINE (R-FC); 1ST DAY IN THE SECOND CYCLE
  32. RITUXIMAB (UNKNOWN) [Suspect]
     Active Substance: RITUXIMAB
     Dosage: R-FC REGIMEN (DAY-1) CYCLE 2
     Route: 065
  33. FLUDARABINE PHOSPHATE. [Suspect]
     Active Substance: FLUDARABINE PHOSPHATE
     Dosage: R-FC REGIMEN (DAYS 1-3) CYCLE 1
     Route: 065
  34. DEXAMETHASONE. [Suspect]
     Active Substance: DEXAMETHASONE
     Dosage: FIRST LINE OF THERAPY R-CD; 4 THE SAME 1 DAY THERAPY CYCLES
  35. CYCLOPHOSPHAMIDE. [Suspect]
     Active Substance: CYCLOPHOSPHAMIDE
     Dosage: FIRST THERAPY LINE (R-FC); 1-3 DAYS IN THE FIRST CYCLE
  36. FLUCONAZOLE. [Suspect]
     Active Substance: FLUCONAZOLE
     Indication: PRODUCT USED FOR UNKNOWN INDICATION
     Dosage: 100 MG, 1X PER DAY
     Route: 065
  37. AMOXICILLIN CLAVULANIC ACID [Suspect]
     Active Substance: AMOXICILLIN\CLAVULANIC ACID
     Dosage: UNK
     Route: 065
  38. RITUXIMAB (UNKNOWN) [Suspect]
     Active Substance: RITUXIMAB
     Dosage: FIRST THERAPY LINE (R-FC); 1ST DAY IN THE THIRD CYCLE
  39. RITUXIMAB (UNKNOWN) [Suspect]
     Active Substance: RITUXIMAB
     Dosage: FIRST LINE OF THERAPY R-CD; 4 THE SAME 1 DAY THERAPY CYCLES
  40. RITUXIMAB (UNKNOWN) [Suspect]
     Active Substance: RITUXIMAB
     Dosage: R-CD REGIMEN (DAY-1) 6 IDENTICAL CYCLES (2ND LINE TREATMENT)
     Route: 065
  41. DEXAMETHASONE. [Suspect]
     Active Substance: DEXAMETHASONE
     Dosage: R-CD REGIMEN (4IDENTICAL CYCLES) DAY 1-7 SECOND LINE TREATMENT
     Route: 065
  42. CYCLOPHOSPHAMIDE. [Suspect]
     Active Substance: CYCLOPHOSPHAMIDE
     Dosage: 1000 MG, QD (DAY 1)
     Route: 065
  43. CYCLOPHOSPHAMIDE. [Suspect]
     Active Substance: CYCLOPHOSPHAMIDE
     Dosage: FIRST THERAPY LINE (R-FC); 1-3 DAYS IN THE SECOND CYCLE
  44. ENDOXAN [CYCLOPHOSPHAMIDE MONOHYDRATE] [Suspect]
     Active Substance: CYCLOPHOSPHAMIDE
     Dosage: DAYS 1-3 (CYCLE 2) R-FC REGIMEN
     Route: 065
  45. ENDOXAN [CYCLOPHOSPHAMIDE MONOHYDRATE] [Suspect]
     Active Substance: CYCLOPHOSPHAMIDE
     Dosage: DAYS 1 R-CD REGIMEN (4IDENTICAL CYCLES) 1ST LINE TREATMENT
     Route: 065
  46. CIPROFLOXACIN. [Suspect]
     Active Substance: CIPROFLOXACIN
     Dosage: 5
     Route: 065
  47. RAMIPRIL. [Suspect]
     Active Substance: RAMIPRIL
     Indication: HYPERTENSION
     Dosage: 5 MG, 1X PER DAY
     Route: 065
  48. FLUDARABINE PHOSPHATE. [Suspect]
     Active Substance: FLUDARABINE PHOSPHATE
     Dosage: FIRST THERAPY LINE (R-FC); 1-3 DAYS IN THE THIRD CYCLE
  49. DEXAMETHASONE. [Suspect]
     Active Substance: DEXAMETHASONE
     Indication: CHRONIC LYMPHOCYTIC LEUKAEMIA
     Dosage: UNK
     Route: 065
  50. DEXAMETHASONE. [Suspect]
     Active Substance: DEXAMETHASONE
     Indication: DISEASE PROGRESSION
     Dosage: 12 MG, QD DAY 1-7 (SECOND LINE TREATMENT)
     Route: 065
  51. CYCLOPHOSPHAMIDE. [Suspect]
     Active Substance: CYCLOPHOSPHAMIDE
     Indication: PRODUCT USED FOR UNKNOWN INDICATION
     Dosage: 425 MG, QD (1-3 DAY)
     Route: 065
  52. CYCLOPHOSPHAMIDE. [Suspect]
     Active Substance: CYCLOPHOSPHAMIDE
     Dosage: 400 MG, QD (1-3 DAY)
     Route: 065
  53. FLUCONAZOLE. [Suspect]
     Active Substance: FLUCONAZOLE
     Dosage: UNK
     Route: 065
  54. RAMIPRIL. [Suspect]
     Active Substance: RAMIPRIL
     Indication: PRODUCT USED FOR UNKNOWN INDICATION
     Dosage: 5 MG, QD
     Route: 065
  55. FILGRASTIM [Suspect]
     Active Substance: FILGRASTIM
     Dosage: 30 MU PER DAY
     Route: 058
  56. RITUXIMAB (UNKNOWN) [Suspect]
     Active Substance: RITUXIMAB
     Dosage: SECOND LINE OF THERAPY R-CD; 6 THE SAME 1-DAY THERAPY CYCLES
  57. RITUXIMAB (UNKNOWN) [Suspect]
     Active Substance: RITUXIMAB
     Dosage: R-FC REGIMEN (DAY-1) CYCLE 1
     Route: 065
  58. RITUXIMAB (UNKNOWN) [Suspect]
     Active Substance: RITUXIMAB
     Dosage: R-FC REGIMEN (DAY-1) CYCLE 3
     Route: 065
  59. FLUDARABINE PHOSPHATE. [Suspect]
     Active Substance: FLUDARABINE PHOSPHATE
     Indication: DISEASE PROGRESSION
     Dosage: 40 MG, QD, DAY 1-3
     Route: 065
  60. FLUDARABINE PHOSPHATE. [Suspect]
     Active Substance: FLUDARABINE PHOSPHATE
     Dosage: R-FC REGIMEN (DAYS 1-3) CYCLE 3
     Route: 065
  61. DEXAMETHASONE. [Suspect]
     Active Substance: DEXAMETHASONE
     Dosage: SECOND THERAPY LINE R-CD; 6 THE SAME 1 DAY THERAPY CYCLES
  62. ENDOXAN [CYCLOPHOSPHAMIDE MONOHYDRATE] [Suspect]
     Active Substance: CYCLOPHOSPHAMIDE
     Dosage: DAYS 1 R-CD REGIMEN (6 IDENTICAL CYCLES) 2ND LINE TREATMENT
     Route: 065
  63. METFORMIN [Suspect]
     Active Substance: METFORMIN HYDROCHLORIDE
     Indication: DIABETES MELLITUS
     Dosage: 850 MG, 1X PER DAY
     Route: 065
  64. FILGRASTIM [Suspect]
     Active Substance: FILGRASTIM
     Indication: PRODUCT USED FOR UNKNOWN INDICATION
     Dosage: 30 UNK
     Route: 058

REACTIONS (17)
  - Pyrexia [Unknown]
  - Malaise [Unknown]
  - Blood disorder [Unknown]
  - Pulmonary embolism [Unknown]
  - Tachycardia [Unknown]
  - Chest pain [Unknown]
  - Dyspnoea exertional [Unknown]
  - Neutropenia [Unknown]
  - Heart rate increased [Unknown]
  - Chronic lymphocytic leukaemia recurrent [Unknown]
  - Steroid diabetes [Unknown]
  - Haemolysis [Recovered/Resolved]
  - Haemolytic anaemia [Unknown]
  - Fatigue [Unknown]
  - Chronic lymphocytic leukaemia [Unknown]
  - Breath sounds abnormal [Unknown]
  - Embolism [Unknown]
